FAERS Safety Report 20540184 (Version 1)
Quarter: 2022Q1

REPORT INFORMATION
  Report Type: Spontaneous
  Country: FR (occurrence: FR)
  Receive Date: 20220302
  Receipt Date: 20220302
  Transmission Date: 20220423
  Serious: Yes (Hospitalization, Other)
  Sender: FDA-Public Use
  Company Number: FR-MLMSERVICE-20220211-3365584-1

PATIENT
  Age: 71 Year
  Sex: Female

DRUGS (2)
  1. EPIRUBICIN HYDROCHLORIDE [Suspect]
     Active Substance: EPIRUBICIN HYDROCHLORIDE
     Indication: Breast cancer recurrent
     Dosage: UNK UNK, CYCLIC
     Dates: start: 202011
  2. CYCLOPHOSPHAMIDE [Concomitant]
     Active Substance: CYCLOPHOSPHAMIDE
     Indication: Breast cancer recurrent
     Dosage: UNK UNK, CYCLIC
     Dates: start: 202011

REACTIONS (3)
  - Administration site extravasation [Recovering/Resolving]
  - Chest wall necrosis [Recovering/Resolving]
  - Joint range of motion decreased [Recovered/Resolved]

NARRATIVE: CASE EVENT DATE: 20200101
